FAERS Safety Report 5247949-8 (Version None)
Quarter: 2007Q1

REPORT INFORMATION
  Report Type: 
  Country: None (occurrence: None)
  Receive Date: 20070227
  Receipt Date: 20070219
  Transmission Date: 20070707
  Serious: Yes (Disabling, Other)
  Sender: FDA-Public Use
  Company Number: US-MERCK-0605USA00231

PATIENT
  Age: 64 Year
  Sex: Female

DRUGS (2)
  1. FOSAMAX [Suspect]
     Indication: OSTEOPOROSIS
     Route: 048
     Dates: start: 20031101, end: 20050101
  2. ZOLOFT [Concomitant]
     Route: 065
     Dates: start: 20030101, end: 20050101

REACTIONS (12)
  - ADVERSE EVENT [None]
  - ANXIETY [None]
  - CARPAL TUNNEL SYNDROME [None]
  - CYSTITIS [None]
  - DEPRESSION [None]
  - DISTURBANCE IN ATTENTION [None]
  - ELECTROCUTION [None]
  - INSOMNIA [None]
  - OSTEONECROSIS [None]
  - SOMNOLENCE [None]
  - STRESS [None]
  - TOOTH ABSCESS [None]
